FAERS Safety Report 6346264-9 (Version None)
Quarter: 2009Q3

REPORT INFORMATION
  Report Type: 
  Country: None (occurrence: None)
  Receive Date: 20090909
  Receipt Date: 20090831
  Transmission Date: 20100115
  Serious: Yes (Hospitalization)
  Sender: FDA-Public Use
  Company Number: US-AMGEN-QUU362566

PATIENT
  Sex: Male

DRUGS (1)
  1. ENBREL [Suspect]
     Indication: RHEUMATOID ARTHRITIS
     Route: 058

REACTIONS (6)
  - ARRHYTHMIA [None]
  - CHEST PAIN [None]
  - INTRACARDIAC THROMBUS [None]
  - PALPITATIONS [None]
  - SYNOVIAL RUPTURE [None]
  - VASCULAR RUPTURE [None]
